FAERS Safety Report 23129070 (Version 1)
Quarter: 2023Q4

REPORT INFORMATION
  Report Type: Spontaneous
  Country: CA (occurrence: CA)
  Receive Date: 20231031
  Receipt Date: 20231031
  Transmission Date: 20240109
  Serious: Yes (Hospitalization, Other)
  Sender: FDA-Public Use
  Company Number: CA-TEVA-2023-CA-2940401

PATIENT
  Age: 53 Year
  Sex: Female

DRUGS (24)
  1. LORAZEPAM [Suspect]
     Active Substance: LORAZEPAM
     Indication: Product used for unknown indication
     Dosage: 1 MILLIGRAM DAILY;
     Route: 065
  2. PROGESTERONE [Interacting]
     Active Substance: PROGESTERONE
     Indication: Product used for unknown indication
     Dosage: 100 MILLIGRAM DAILY;
     Route: 065
  3. VARENICLINE [Interacting]
     Active Substance: VARENICLINE
     Indication: Product used for unknown indication
     Dosage: 2 MILLIGRAM DAILY;
     Route: 065
  4. VARENICLINE [Interacting]
     Active Substance: VARENICLINE
     Dosage: .5 MILLIGRAM DAILY;
     Route: 065
  5. VENLAFAXINE [Interacting]
     Active Substance: VENLAFAXINE HYDROCHLORIDE
     Indication: Product used for unknown indication
     Route: 065
  6. BIFIDOBACTERIUM LONGUM [Suspect]
     Active Substance: BIFIDOBACTERIUM LONGUM
     Indication: Product used for unknown indication
     Route: 048
  7. BUDESONIDE\FORMOTEROL FUMARATE [Suspect]
     Active Substance: BUDESONIDE\FORMOTEROL FUMARATE
     Indication: Product used for unknown indication
     Dosage: 12 MICROGRAM DAILY;
     Route: 065
  8. BUDESONIDE\FORMOTEROL FUMARATE [Suspect]
     Active Substance: BUDESONIDE\FORMOTEROL FUMARATE
     Dosage: 400 MICROGRAM DAILY;
     Route: 065
  9. .ALPHA.-TOCOPHEROL, D- [Suspect]
     Active Substance: .ALPHA.-TOCOPHEROL, D-
     Indication: Product used for unknown indication
     Route: 048
  10. DOCONEXENT [Suspect]
     Active Substance: DOCONEXENT
     Indication: Product used for unknown indication
     Dosage: 240 MILLIGRAM DAILY;
     Route: 048
  11. ICOSAPENT [Suspect]
     Active Substance: ICOSAPENT
     Indication: Product used for unknown indication
     Dosage: 240 MILLIGRAM DAILY;
     Route: 048
  12. ERGOCALCIFEROL [Suspect]
     Active Substance: ERGOCALCIFEROL
     Indication: Product used for unknown indication
     Dosage: 1000 IU (INTERNATIONAL UNIT) DAILY;
     Route: 048
  13. ESTRADIOL [Suspect]
     Active Substance: ESTRADIOL
     Indication: Product used for unknown indication
     Dosage: 50 MICROGRAM DAILY;
     Route: 062
  14. FISH OIL [Suspect]
     Active Substance: FISH OIL
     Indication: Product used for unknown indication
     Route: 048
  15. LACTOBACILLUS ACIDOPHILUS [Suspect]
     Active Substance: LACTOBACILLUS ACIDOPHILUS
     Indication: Product used for unknown indication
     Route: 048
  16. LACTOBACILLUS CASEI [Suspect]
     Active Substance: LACTOBACILLUS CASEI
     Indication: Product used for unknown indication
     Route: 065
  17. LACTOBACILLUS RHAMNOSUS [Suspect]
     Active Substance: LACTOBACILLUS RHAMNOSUS
     Indication: Product used for unknown indication
     Route: 065
  18. LINOLEIC ACID [Suspect]
     Active Substance: LINOLEIC ACID
     Indication: Product used for unknown indication
     Route: 048
  19. DIMETHYL SULFONE [Suspect]
     Active Substance: DIMETHYL SULFONE
     Indication: Product used for unknown indication
     Route: 065
  20. SOMATROPIN [Suspect]
     Active Substance: SOMATROPIN
     Indication: Product used for unknown indication
     Route: 065
  21. THIOCTIC ACID [Suspect]
     Active Substance: THIOCTIC ACID
     Indication: Product used for unknown indication
     Route: 065
  22. UBIDECARENONE [Suspect]
     Active Substance: UBIDECARENONE
     Indication: Product used for unknown indication
     Route: 065
  23. VITAMIN A [Suspect]
     Active Substance: VITAMIN A
     Indication: Product used for unknown indication
     Dosage: 376 MILLIGRAM DAILY;
     Route: 048
  24. ASCORBIC ACID [Suspect]
     Active Substance: ASCORBIC ACID
     Indication: Product used for unknown indication
     Dosage: 30 MILLIGRAM DAILY;
     Route: 048

REACTIONS (6)
  - Drug-induced liver injury [Unknown]
  - Hepatic cirrhosis [Unknown]
  - Hepatic encephalopathy [Unknown]
  - Hepatic necrosis [Unknown]
  - Hepatotoxicity [Unknown]
  - Drug interaction [Unknown]
